FAERS Safety Report 14768815 (Version 1)
Quarter: 2018Q2

REPORT INFORMATION
  Report Type: Spontaneous
  Country: US (occurrence: US)
  Receive Date: 20180417
  Receipt Date: 20180417
  Transmission Date: 20180711
  Serious: No
  Sender: FDA-Public Use
  Company Number: US-DSJP-DSU-2018-102809

PATIENT
  Sex: Female

DRUGS (1)
  1. MORPHABOND ER [Suspect]
     Active Substance: MORPHINE SULFATE
     Indication: PRODUCT USED FOR UNKNOWN INDICATION
     Dosage: 200 MG, BID (TWO 100-MG TABLETS TWICE DAILY)
     Route: 048
     Dates: start: 201801, end: 201801

REACTIONS (2)
  - Malaise [Unknown]
  - Medication residue present [Unknown]

NARRATIVE: CASE EVENT DATE: 201801
